FAERS Safety Report 17445376 (Version 1)
Quarter: 2020Q1

REPORT INFORMATION
  Report Type: Spontaneous
  Country: DE (occurrence: DE)
  Receive Date: 20200221
  Receipt Date: 20200221
  Transmission Date: 20200409
  Serious: Yes (Other)
  Sender: FDA-Public Use
  Company Number: NVSC2020DE042797

PATIENT
  Age: 37 Year
  Sex: Female
  Weight: 97 kg

DRUGS (4)
  1. LAMOTRIGIN HEUMANN [Interacting]
     Active Substance: LAMOTRIGINE
     Dosage: 150MG-0-100MG
     Route: 065
  2. METOHEXAL SUCC [Concomitant]
     Active Substance: METOPROLOL SUCCINATE
     Indication: TACHYCARDIA
     Dosage: UNK
     Route: 065
  3. LAMOTRIGIN HEUMANN [Interacting]
     Active Substance: LAMOTRIGINE
     Indication: EPILEPSY
     Dosage: 150MG-0-100MG
     Route: 065
  4. DOXYCYCLIN - 1 A PHARMA [Suspect]
     Active Substance: DOXYCYCLINE
     Indication: BRONCHITIS
     Dosage: 200 MG, QD (1X200MGEINNAHME WIE VERORNET)
     Route: 065
     Dates: start: 20191021, end: 20191028

REACTIONS (4)
  - Derealisation [Recovered/Resolved]
  - Epilepsy [Recovered/Resolved]
  - Language disorder [Recovered/Resolved]
  - Epileptic aura [Recovered/Resolved]

NARRATIVE: CASE EVENT DATE: 20191025
